FAERS Safety Report 20689923 (Version 1)
Quarter: 2022Q2

REPORT INFORMATION
  Report Type: Spontaneous
  Country: OM (occurrence: OM)
  Receive Date: 20220408
  Receipt Date: 20220408
  Transmission Date: 20220721
  Serious: Yes (Hospitalization, Other)
  Sender: FDA-Public Use
  Company Number: OM-MACLEODS PHARMACEUTICALS US LTD-MAC2022035140

PATIENT

DRUGS (8)
  1. OLANZAPINE [Suspect]
     Active Substance: OLANZAPINE
     Indication: Depression
     Dosage: UNK
     Route: 065
  2. CARBIDOPA\LEVODOPA [Suspect]
     Active Substance: CARBIDOPA\LEVODOPA
     Indication: Parkinson^s disease
     Dosage: UNK UNK, TID; 25/100 MG
     Route: 065
     Dates: start: 20170524
  3. CARBIDOPA\LEVODOPA [Suspect]
     Active Substance: CARBIDOPA\LEVODOPA
     Dosage: UNK, QD
     Route: 065
  4. CARBIDOPA\LEVODOPA [Suspect]
     Active Substance: CARBIDOPA\LEVODOPA
     Dosage: 800 MILLIGRAM, QD THE DAILY DOSE OF LEVODOPA WAS INCREASED GRADUALLY TO 800 MG; 25MG/100MG
     Route: 065
  5. SINEMET CR [Suspect]
     Active Substance: CARBIDOPA\LEVODOPA
     Indication: Parkinson^s disease
     Dosage: 1 DOSAGE FORM, BID; 50MG/200MG
     Route: 065
  6. SINEMET CR [Suspect]
     Active Substance: CARBIDOPA\LEVODOPA
     Dosage: 1 DOSAGE FORM/ 2 HOUR; 25MG/250MG; 1 TABLET EVERY 2 HOURS
     Route: 065
  7. STALEVO [Suspect]
     Active Substance: CARBIDOPA\ENTACAPONE\LEVODOPA
     Indication: Parkinson^s disease
     Dosage: 4 DOSAGE FORM, QD
     Route: 065
  8. AMANTADINE [Concomitant]
     Active Substance: AMANTADINE
     Indication: Parkinson^s disease
     Dosage: 100 MILLIGRAM, BID
     Route: 065

REACTIONS (6)
  - Parkinson^s disease [Recovering/Resolving]
  - Unmasking of previously unidentified disease [Recovering/Resolving]
  - Dopamine dysregulation syndrome [Recovered/Resolved]
  - Dyskinesia [Recovered/Resolved]
  - Compulsive shopping [Recovered/Resolved]
  - Compulsive hoarding [Recovered/Resolved]

NARRATIVE: CASE EVENT DATE: 20180107
